FAERS Safety Report 6769296-5 (Version None)
Quarter: 2010Q2

REPORT INFORMATION
  Report Type: 
  Country: None (occurrence: None)
  Receive Date: 20100615
  Receipt Date: 20100601
  Transmission Date: 20101027
  Serious: Yes (Hospitalization, Other)
  Sender: FDA-Public Use
  Company Number: US-ELI_LILLY_AND_COMPANY-US201003000769

PATIENT
  Sex: Male

DRUGS (11)
  1. FORTEO [Suspect]
     Indication: OSTEOPOROSIS
     Dosage: 20 UG, DAILY (1/D)
     Dates: start: 20100112
  2. PREDNISONE [Concomitant]
  3. FUROSEMIDE [Concomitant]
     Dosage: UNK, AS NEEDED
  4. KLOR-CON [Concomitant]
  5. CRESTOR [Concomitant]
  6. ASPIRIN [Concomitant]
  7. COZAAR [Concomitant]
  8. ALBUTEROL [Concomitant]
     Route: 055
  9. SYMBICORT [Concomitant]
     Route: 055
  10. SPIRIVA [Concomitant]
     Route: 055
  11. PROVENTIL                               /USA/ [Concomitant]

REACTIONS (2)
  - CHRONIC OBSTRUCTIVE PULMONARY DISEASE [None]
  - MYCOBACTERIUM AVIUM COMPLEX INFECTION [None]
